FAERS Safety Report 8778400 (Version 1)
Quarter: 2012Q4

REPORT INFORMATION
  Report Type: 
  Country: US (occurrence: US)
  Receive Date: 20120911
  Receipt Date: 20120911
  Transmission Date: 20130627
  Serious: No
  Sender: FDA-Public Use
  Company Number: US-BAYER-2012-094019

PATIENT
  Age: 42 Year
  Sex: Female
  Weight: 91 kg

DRUGS (3)
  1. ALEVE CAPLET/TABLET,MIDOL EXTENDED RELIEF CAPLET [Suspect]
     Indication: ARTHRALGIA
     Route: 048
  2. LISINOPRIL [Concomitant]
  3. NYQUIL [Concomitant]
     Dosage: UNK

REACTIONS (1)
  - Arthralgia [None]
